FAERS Safety Report 9178673 (Version 5)
Quarter: 2013Q3

REPORT INFORMATION
  Report Type: Report from Study
  Country: US (occurrence: US)
  Receive Date: 20130321
  Receipt Date: 20130729
  Transmission Date: 20140515
  Serious: Yes (Hospitalization)
  Sender: FDA-Public Use
  Company Number: US-ROCHE-1202949

PATIENT
  Age: 58 Year
  Sex: Male
  Weight: 98 kg

DRUGS (6)
  1. PEG-INTERFERON ALFA 2A [Suspect]
     Indication: CHRONIC HEPATITIS C
     Dosage: DATE OF MOST RECENT DOSE: 04/DEC/2012
     Route: 058
     Dates: start: 20121030, end: 20121207
  2. RIBAVIRIN [Suspect]
     Indication: PRODUCT USED FOR UNKNOWN INDICATION
     Dosage: DATE OF MOST RECENT DOSE: 07/DEC/2012
     Route: 065
     Dates: start: 20121030
  3. TELAPREVIR [Suspect]
     Indication: PRODUCT USED FOR UNKNOWN INDICATION
     Dosage: DATE OF MOST RECENT DOSE: 07/DEC/2012
     Route: 065
     Dates: start: 20121030
  4. AMLODIPINE [Concomitant]
     Dosage: DAILY DOSE
     Route: 065
  5. HYDROCHLOROTHIAZIDE [Concomitant]
     Dosage: 12.5-25 MG DAILY DOSE
     Route: 065
  6. METFORMIN HYDROCHLORIDE [Concomitant]
     Route: 065

REACTIONS (2)
  - Anaemia [Unknown]
  - Hemiparesis [Unknown]
